FAERS Safety Report 8347016-0 (Version None)
Quarter: 2012Q2

REPORT INFORMATION
  Report Type: 
  Country: None (occurrence: None)
  Receive Date: 20120507
  Receipt Date: 20120507
  Transmission Date: 20120825
  Serious: Yes (Hospitalization)
  Sender: FDA-Public Use
  Company Number: None

PATIENT
  Sex: Female
  Weight: 107 kg

DRUGS (4)
  1. DOXORUBICIN HYDROCHLORIDE [Suspect]
     Dosage: 100 MG
  2. BLEOMYCIN SULFATE [Suspect]
     Dosage: 40 UNIT
  3. VINBLASTINE SULFATE [Suspect]
     Dosage: 24 MG
  4. DACARBAZINE [Suspect]
     Dosage: 1480 MG

REACTIONS (1)
  - NEUTROPENIA [None]
